FAERS Safety Report 19177863 (Version 2)
Quarter: 2021Q4

REPORT INFORMATION
  Report Type: Report from Study
  Country: US (occurrence: US)
  Receive Date: 20210426
  Receipt Date: 20211110
  Transmission Date: 20220303
  Serious: Yes (Other)
  Sender: FDA-Public Use
  Company Number: US-ABBVIE-20K-163-3637319-00

PATIENT
  Sex: Male

DRUGS (3)
  1. IMBRUVICA [Suspect]
     Active Substance: IBRUTINIB
     Indication: Chronic lymphocytic leukaemia
     Route: 048
  2. IMBRUVICA [Suspect]
     Active Substance: IBRUTINIB
     Route: 048
     Dates: start: 20180907
  3. IMBRUVICA [Suspect]
     Active Substance: IBRUTINIB
     Route: 048
     Dates: start: 20180908, end: 20211015

REACTIONS (6)
  - Seizure [Recovering/Resolving]
  - Exercise tolerance decreased [Not Recovered/Not Resolved]
  - Hyperhidrosis [Unknown]
  - Poor quality sleep [Unknown]
  - Night sweats [Unknown]
  - Asthenia [Unknown]
